FAERS Safety Report 6169753-9 (Version None)
Quarter: 2009Q2

REPORT INFORMATION
  Report Type: 
  Country: None (occurrence: None)
  Receive Date: 20090428
  Receipt Date: 20090414
  Transmission Date: 20091009
  Serious: Yes (Other)
  Sender: FDA-Public Use
  Company Number: GB-ROCHE-627360

PATIENT
  Age: 18 Month

DRUGS (5)
  1. MYCOPHENOLATE MOFETIL [Suspect]
     Indication: STEM CELL TRANSPLANT
     Route: 065
  2. CYCLOSPORINE [Suspect]
     Indication: PROPHYLAXIS AGAINST GRAFT VERSUS HOST DISEASE
     Dosage: SECOND INDICATION: STEM CELL TRANSPLANT
     Route: 065
  3. CAMPATH-1 [Concomitant]
     Indication: STEM CELL TRANSPLANT
  4. FLUDARABINE PHOSPHATE [Concomitant]
     Indication: STEM CELL TRANSPLANT
  5. MELPHALAN [Concomitant]
     Indication: STEM CELL TRANSPLANT

REACTIONS (2)
  - CYTOMEGALOVIRUS INFECTION [None]
  - GRAFT VERSUS HOST DISEASE [None]
